FAERS Safety Report 10090564 (Version 2)
Quarter: 2014Q2

REPORT INFORMATION
  Report Type: Spontaneous
  Country: US (occurrence: US)
  Receive Date: 20140421
  Receipt Date: 20140512
  Transmission Date: 20141212
  Serious: Yes (Hospitalization, Other)
  Sender: FDA-Public Use
  Company Number: US-BAYER-2014-056781

PATIENT
  Age: 48 Year
  Sex: Female

DRUGS (13)
  1. OCELLA [Suspect]
  2. BUPROPION [Concomitant]
     Dosage: 150 MG, QD
     Route: 048
  3. OMEPRAZOLE [Concomitant]
     Dosage: 20 MG, QD
     Route: 048
  4. LEXAPRO [Concomitant]
     Dosage: 20 MG, QD
     Route: 048
  5. HYDROCODONE/ACETAMINOPHEN [Concomitant]
     Indication: PAIN
     Dosage: 10/325MG -TAKE ONE TABLET
     Route: 048
  6. WELLBUTRIN [Concomitant]
  7. PHENERGAN [Concomitant]
  8. DARVOCET [Concomitant]
  9. PROPOXYPHENE HCL AND ACETAMINOPHEN [Concomitant]
  10. ALPRAZOLAM [Concomitant]
  11. CIPROFLOXACIN [Concomitant]
  12. ENOXAPARIN [Concomitant]
  13. PERCOCET [Concomitant]

REACTIONS (3)
  - Pulmonary embolism [None]
  - Deep vein thrombosis [None]
  - Cholelithiasis [None]
